FAERS Safety Report 11345394 (Version 1)
Quarter: 2015Q3

REPORT INFORMATION
  Report Type: Spontaneous
  Country: CH (occurrence: CH)
  Receive Date: 20150806
  Receipt Date: 20150806
  Transmission Date: 20151125
  Serious: Yes (Hospitalization, Other)
  Sender: FDA-Public Use
  Company Number: CH-ASTRAZENECA-2014SE69662

PATIENT
  Age: 14875 Day
  Sex: Female

DRUGS (5)
  1. NEXIUM [Suspect]
     Active Substance: ESOMEPRAZOLE MAGNESIUM
     Dosage: EVERY DAY
     Route: 048
     Dates: start: 201406, end: 201406
  2. TILUR [Suspect]
     Active Substance: ACEMETACIN
     Route: 001
     Dates: start: 201406, end: 201408
  3. IRFEN [Suspect]
     Active Substance: IBUPROFEN
     Dosage: THREE TIMES A DAY
     Route: 048
     Dates: start: 201406, end: 201406
  4. TRAMAL [Suspect]
     Active Substance: TRAMADOL
     Dosage: 15 GTT EVERY DAY, 15 DROPS = 37.5 MG 1X/DAY
     Route: 048
     Dates: start: 201406
  5. CYMBALTA [Suspect]
     Active Substance: DULOXETINE HYDROCHLORIDE
     Indication: DEPRESSION
     Route: 048
     Dates: start: 2013

REACTIONS (2)
  - Exposure during pregnancy [Recovered/Resolved]
  - Cephalo-pelvic disproportion [Unknown]

NARRATIVE: CASE EVENT DATE: 20140417
